FAERS Safety Report 7843733-7 (Version None)
Quarter: 2011Q4

REPORT INFORMATION
  Report Type: 
  Country: None (occurrence: None)
  Receive Date: 20111025
  Receipt Date: 20111017
  Transmission Date: 20120403
  Serious: Yes (Hospitalization, Other)
  Sender: FDA-Public Use
  Company Number: US-BAYER-2011-077376

PATIENT
  Age: 70 Year
  Sex: Female
  Weight: 78.912 kg

DRUGS (12)
  1. XALATAN [Concomitant]
     Indication: GLAUCOMA
     Dosage: 0.005 % (1 IN 1 DAY)
     Route: 047
     Dates: start: 19990101
  2. DOXYCYCLINE [Concomitant]
     Indication: ROSACEA
     Dosage: 20 MG, TIW
     Dates: start: 20110301
  3. DRONABINOL [Concomitant]
     Indication: DECREASED APPETITE
     Dosage: 2.5 MG, BID
     Dates: start: 20110716
  4. OXYCET [Concomitant]
     Indication: BACK PAIN
     Dosage: 5/325 Q4H P'RN
     Dates: start: 20100401
  5. MEGESTROL ACETATE [Concomitant]
     Indication: DECREASED APPETITE
     Dosage: 800 MG, QD
     Dates: start: 20110630, end: 20110705
  6. OXYCET [Concomitant]
     Indication: ARTHRALGIA
  7. CARISOPRODOL [Concomitant]
     Indication: BACK PAIN
  8. HYDROCHLOROTHIAZIDE [Concomitant]
     Indication: OEDEMA PERIPHERAL
     Dosage: 12.5 MG, QD
     Dates: start: 20110601
  9. BISACODYL [Concomitant]
     Indication: CONSTIPATION
     Dosage: 5 MG, PRN
     Dates: start: 20110101
  10. SORAFENIB (RAF KINASE INHIBITOR) [Suspect]
     Indication: HEPATIC NEOPLASM MALIGNANT
     Dosage: 200 MG, BID
     Route: 048
     Dates: start: 20110630, end: 20110728
  11. CARISOPRODOL [Concomitant]
     Indication: ARTHRALGIA
     Dosage: 250 MG Q3H PRN
     Dates: start: 20110401
  12. LANSOPRAZOLE [Concomitant]
     Indication: GASTROOESOPHAGEAL REFLUX DISEASE
     Dosage: 15 MG, BID
     Dates: start: 20100101

REACTIONS (10)
  - DEPRESSION SUICIDAL [None]
  - FATIGUE [None]
  - GASTROINTESTINAL MOTILITY DISORDER [None]
  - CONFUSIONAL STATE [None]
  - FAILURE TO THRIVE [None]
  - ARTHRALGIA [None]
  - GENERAL PHYSICAL HEALTH DETERIORATION [None]
  - FALL [None]
  - DECREASED APPETITE [None]
  - ABDOMINAL PAIN [None]
